FAERS Safety Report 23912212 (Version 1)
Quarter: 2024Q2

REPORT INFORMATION
  Report Type: Spontaneous
  Country: CN (occurrence: CN)
  Receive Date: 20240528
  Receipt Date: 20240528
  Transmission Date: 20240716
  Serious: Yes (Hospitalization, Other)
  Sender: FDA-Public Use
  Company Number: CN-KYOWAKIRIN-2024KK012727

PATIENT

DRUGS (1)
  1. FARESTON [Suspect]
     Active Substance: TOREMIFENE CITRATE
     Indication: Breast cancer
     Dosage: QD (60 MG,1 IN 1 D)
     Route: 048
     Dates: start: 20240317, end: 20240514

REACTIONS (7)
  - Liver injury [Recovering/Resolving]
  - Feeling hot [Unknown]
  - Papule [Unknown]
  - Dry skin [Unknown]
  - Hyperhidrosis [Unknown]
  - Asthenia [Unknown]
  - Pruritus [Unknown]

NARRATIVE: CASE EVENT DATE: 20240510
